FAERS Safety Report 23109895 (Version 3)
Quarter: 2023Q4

REPORT INFORMATION
  Report Type: Report from Study
  Country: US (occurrence: US)
  Receive Date: 20231026
  Receipt Date: 20231123
  Transmission Date: 20240109
  Serious: No
  Sender: FDA-Public Use
  Company Number: US-002147023-NVSC2023US228547

PATIENT
  Age: 32 Year
  Sex: Female

DRUGS (1)
  1. KESIMPTA [Suspect]
     Active Substance: OFATUMUMAB
     Indication: Relapsing multiple sclerosis
     Dosage: UNK
     Route: 065
     Dates: start: 20231013

REACTIONS (12)
  - Influenza like illness [Unknown]
  - Pyrexia [Recovered/Resolved]
  - Chills [Recovered/Resolved]
  - Myalgia [Recovered/Resolved]
  - Fatigue [Unknown]
  - Pain [Recovered/Resolved]
  - Mobility decreased [Recovering/Resolving]
  - Musculoskeletal stiffness [Recovering/Resolving]
  - Pharyngitis [Unknown]
  - Dysphonia [Unknown]
  - Sinusitis [Unknown]
  - Cough [Unknown]

NARRATIVE: CASE EVENT DATE: 20231013
